FAERS Safety Report 11598606 (Version 1)
Quarter: 2015Q4

REPORT INFORMATION
  Report Type: Spontaneous
  Country: US (occurrence: US)
  Receive Date: 20151006
  Receipt Date: 20151006
  Transmission Date: 20160304
  Serious: Yes (Other)
  Sender: FDA-Public Use
  Company Number: US-PFIZER INC-2015330813

PATIENT
  Age: 58 Year
  Sex: Male
  Weight: 78 kg

DRUGS (5)
  1. SYSTANE (HYPROMELLOSE 2910 (4000 MPA.S)) [Concomitant]
     Active Substance: HYPROMELLOSE 2910 (4000 MPA.S)
     Indication: DRY EYE
     Dosage: UNK (USES A DROP IN EACH EYE; 2 TO 3 TIMES PER DAY)
  2. REFRESH [Concomitant]
     Active Substance: UNSPECIFIED INGREDIENT
     Indication: DRY EYE
     Dosage: UNK (USES A DROP IN EACH EYE; 2 TO 3 TIMES PER DAY)
  3. FISH OIL [Concomitant]
     Active Substance: FISH OIL
     Indication: DRY EYE
     Dosage: 3000 MG, 1X/DAY
     Route: 048
  4. RELPAX [Suspect]
     Active Substance: ELETRIPTAN HYDROBROMIDE
     Indication: MIGRAINE
     Dosage: 40 MG, AS NEEDED(ONCE A DAY WHEN NEEDED BY MOUTH)
     Route: 048
     Dates: end: 201506
  5. RELPAX [Suspect]
     Active Substance: ELETRIPTAN HYDROBROMIDE
     Indication: HEADACHE

REACTIONS (1)
  - Atrial fibrillation [Recovering/Resolving]

NARRATIVE: CASE EVENT DATE: 201506
